FAERS Safety Report 6519830-5 (Version None)
Quarter: 2009Q4

REPORT INFORMATION
  Report Type: 
  Country: None (occurrence: None)
  Receive Date: 20091228
  Receipt Date: 20091228
  Transmission Date: 20100525
  Serious: No
  Sender: FDA-Public Use
  Company Number: None

PATIENT
  Sex: Female
  Weight: 66.6788 kg

DRUGS (1)
  1. MIRENA [Suspect]
     Dosage: MIRENA IUD
     Dates: start: 20081212, end: 20090710

REACTIONS (1)
  - MIGRAINE [None]
